FAERS Safety Report 21504417 (Version 1)
Quarter: 2022Q4

REPORT INFORMATION
  Report Type: Spontaneous
  Country: JP (occurrence: JP)
  Receive Date: 20221025
  Receipt Date: 20221025
  Transmission Date: 20230113
  Serious: Yes (Death, Other)
  Sender: FDA-Public Use
  Company Number: JP-OTSUKA-JP-2012-16740

PATIENT
  Age: 10 Year
  Sex: Male
  Weight: 73.1 kg

DRUGS (9)
  1. ABILIFY [Suspect]
     Active Substance: ARIPIPRAZOLE
     Indication: Irritability
     Dosage: 3 MG, QD
     Route: 048
     Dates: start: 20120306, end: 201210
  2. ABILIFY [Suspect]
     Active Substance: ARIPIPRAZOLE
     Indication: Autism spectrum disorder
     Dosage: 3 MG, QD
     Route: 048
     Dates: start: 20100519, end: 20110929
  3. RISPERDAL [Suspect]
     Active Substance: RISPERIDONE
     Indication: Sedation
     Dosage: 0.5 MG/DAY, PRN
     Route: 048
     Dates: start: 20110309, end: 20110929
  4. ZYPREXA [Suspect]
     Active Substance: OLANZAPINE
     Indication: Sedation
     Dosage: 2.5 MG, QD
     Route: 048
     Dates: start: 20110404, end: 20110929
  5. PIMOZIDE [Suspect]
     Active Substance: PIMOZIDE
     Indication: Hyperphagia
     Dosage: 3 MG, QD
     Route: 048
     Dates: start: 20120518, end: 201210
  6. PIMOZIDE [Suspect]
     Active Substance: PIMOZIDE
     Indication: Sedation
     Dosage: 1.5 MG, QD
     Route: 048
     Dates: start: 20120413, end: 20120517
  7. SERTRALINE HYDROCHLORIDE [Suspect]
     Active Substance: SERTRALINE HYDROCHLORIDE
     Indication: Anxiety
     Dosage: 25 MG, QD
     Route: 048
     Dates: start: 20120914, end: 20121016
  8. SERTRALINE HYDROCHLORIDE [Suspect]
     Active Substance: SERTRALINE HYDROCHLORIDE
     Indication: Incontinence
  9. JAPANESE ENCEPHALITIS VIRUS VACCINE INACTIVATED [Suspect]
     Active Substance: JAPANESE ENCEPHALITIS VIRUS STRAIN NAKAYAMA-NIH ANTIGEN (FORMALDEHYDE INACTIVATED)
     Indication: Immunisation
     Dosage: UNK
     Route: 058
     Dates: start: 201210, end: 201210

REACTIONS (2)
  - Sudden cardiac death [Fatal]
  - Arrhythmia [Fatal]

NARRATIVE: CASE EVENT DATE: 20121001
